FAERS Safety Report 16030058 (Version 2)
Quarter: 2019Q1

REPORT INFORMATION
  Report Type: Spontaneous
  Country: GB (occurrence: GB)
  Receive Date: 20190304
  Receipt Date: 20190311
  Transmission Date: 20190418
  Serious: Yes (Other)
  Sender: FDA-Public Use
  Company Number: GB-TEVA-2019-GB-1018103

PATIENT
  Age: 36 Year
  Sex: Male
  Weight: 56 kg

DRUGS (1)
  1. DICLOFENAC [Suspect]
     Active Substance: DICLOFENAC
     Indication: ANKYLOSING SPONDYLITIS
     Dosage: 75 MILLIGRAM DAILY;
     Route: 048
     Dates: start: 20070720, end: 20070724

REACTIONS (2)
  - Haematuria [Recovered/Resolved]
  - Chromaturia [Recovered/Resolved]

NARRATIVE: CASE EVENT DATE: 20070724
